FAERS Safety Report 6327791-7 (Version None)
Quarter: 2009Q3

REPORT INFORMATION
  Report Type: 
  Country: None (occurrence: None)
  Receive Date: 20090824
  Receipt Date: 20090811
  Transmission Date: 20100115
  Serious: Yes (Other)
  Sender: FDA-Public Use
  Company Number: 2009-03249

PATIENT
  Sex: Male

DRUGS (1)
  1. VELCADE [Suspect]
     Indication: MANTLE CELL LYMPHOMA RECURRENT
     Dosage: 1.3 MG/M2, INTRAVENOUS; 1 MG/M2, INTRAVENOUS
     Route: 042

REACTIONS (3)
  - BLINDNESS TRANSIENT [None]
  - NEUROPATHY PERIPHERAL [None]
  - OPTIC NEUROPATHY [None]
